FAERS Safety Report 5284093-8 (Version None)
Quarter: 2007Q1

REPORT INFORMATION
  Report Type: 
  Country: None (occurrence: None)
  Receive Date: 20070327
  Receipt Date: 20070313
  Transmission Date: 20070707
  Serious: Yes (Life-Threatening, Hospitalization)
  Sender: FDA-Public Use
  Company Number: 238226

PATIENT
  Age: 65 Year
  Sex: Female
  Weight: 49 kg

DRUGS (3)
  1. BEVACIZUMAB (BEVACIZUMAB) PWDR + SOLVENT, INFUSION SOLN, 100MG [Suspect]
     Indication: LUNG NEOPLASM MALIGNANT
     Dosage: 743 MG, Q3W, INTRAVENOUS
     Route: 042
     Dates: start: 20070216
  2. TAXOL [Suspect]
     Indication: LUNG NEOPLASM MALIGNANT
     Dosage: 292 MG, INTRAVENOUS
     Route: 042
     Dates: start: 20070216
  3. CARBOPLATIN [Suspect]
     Indication: LUNG NEOPLASM MALIGNANT
     Dosage: 352 MG, INTRAVENOUS
     Route: 042
     Dates: start: 20070216

REACTIONS (2)
  - CHEST PAIN [None]
  - SINUS TACHYCARDIA [None]
